FAERS Safety Report 21338350 (Version 1)
Quarter: 2022Q3

REPORT INFORMATION
  Report Type: Spontaneous
  Country: US (occurrence: US)
  Receive Date: 20220915
  Receipt Date: 20220915
  Transmission Date: 20221026
  Serious: Yes (Death, Other)
  Sender: FDA-Public Use
  Company Number: US-BRISTOL-MYERS SQUIBB COMPANY-2022-105907

PATIENT
  Age: 67 Year
  Sex: Female
  Weight: 112.9 kg

DRUGS (1)
  1. POMALYST [Suspect]
     Active Substance: POMALIDOMIDE
     Indication: Plasma cell myeloma
     Dosage: DAY 1-21 DAYS OUT OF 28 DAYS
     Route: 048
     Dates: start: 20200522, end: 20220910

REACTIONS (1)
  - Death [Fatal]

NARRATIVE: CASE EVENT DATE: 20220910
